FAERS Safety Report 12407672 (Version 1)
Quarter: 2016Q2

REPORT INFORMATION
  Report Type: Report from Study
  Country: US (occurrence: US)
  Receive Date: 20160526
  Receipt Date: 20160526
  Transmission Date: 20160815
  Serious: No
  Sender: FDA-Public Use
  Company Number: GXBR2015US000962

PATIENT
  Sex: Female
  Weight: 14.97 kg

DRUGS (1)
  1. OMNITROPE [Suspect]
     Active Substance: SOMATROPIN
     Indication: BODY HEIGHT BELOW NORMAL
     Dosage: 0.75 MG, QD
     Route: 065
     Dates: start: 20150302, end: 20150304

REACTIONS (8)
  - Pneumonia [Recovered/Resolved]
  - Injection site bruising [Not Recovered/Not Resolved]
  - Screaming [Not Recovered/Not Resolved]
  - Fear of injection [Unknown]
  - Cough [Recovered/Resolved]
  - Pyrexia [Recovered/Resolved]
  - Scratch [Not Recovered/Not Resolved]
  - Influenza [Recovered/Resolved]
